FAERS Safety Report 14428724 (Version 1)
Quarter: 2018Q1

REPORT INFORMATION
  Report Type: Spontaneous
  Country: US (occurrence: US)
  Receive Date: 20180123
  Receipt Date: 20180123
  Transmission Date: 20180509
  Serious: No
  Sender: FDA-Public Use
  Company Number: None

PATIENT
  Age: 67 Year
  Sex: Male

DRUGS (1)
  1. TEMOZOLOMIDE CAP 140MG [Suspect]
     Active Substance: TEMOZOLOMIDE

REACTIONS (4)
  - Tremor [None]
  - Neoplasm recurrence [None]
  - Muscle twitching [None]
  - Herpes zoster [None]

NARRATIVE: CASE EVENT DATE: 20180103
